FAERS Safety Report 7486399-0 (Version None)
Quarter: 2011Q2

REPORT INFORMATION
  Report Type: 
  Country: None (occurrence: None)
  Receive Date: 20110516
  Receipt Date: 20110516
  Transmission Date: 20111010
  Serious: Yes (Hospitalization)
  Sender: FDA-Public Use
  Company Number: None

PATIENT
  Age: 63 Year
  Sex: Male
  Weight: 103 kg

DRUGS (2)
  1. DECITABINE [Suspect]
     Indication: ACUTE MYELOID LEUKAEMIA
     Dosage: 20MG/MG SQUARED/ QD D1-28
     Dates: start: 20110422, end: 20110426
  2. LBH589 [Suspect]
     Indication: ACUTE MYELOID LEUKAEMIA
     Dosage: 40MG PO D1-D14 ON NONCONSECUTIVE DAYS OF 28D CYCLE
     Dates: start: 20110422, end: 20110505

REACTIONS (3)
  - COUGH [None]
  - DYSPNOEA [None]
  - PARAINFLUENZAE VIRUS INFECTION [None]
